FAERS Safety Report 17970885 (Version 1)
Quarter: 2020Q3

REPORT INFORMATION
  Report Type: Other
  Country: DE (occurrence: DE)
  Receive Date: 20200702
  Receipt Date: 20200702
  Transmission Date: 20201103
  Serious: No
  Sender: FDA-Public Use
  Company Number: DE-LUPIN PHARMACEUTICALS INC.-2020-00611

PATIENT
  Age: 52 Year
  Sex: Male
  Weight: 97 kg

DRUGS (2)
  1. SIMVASTATIN. [Suspect]
     Active Substance: SIMVASTATIN
     Indication: LOW DENSITY LIPOPROTEIN DECREASED
     Dosage: 20 MILLIGRAM, UNK
     Route: 048
     Dates: start: 20170221, end: 20170309
  2. ASPIRIN. [Concomitant]
     Active Substance: ASPIRIN
     Indication: PRODUCT USED FOR UNKNOWN INDICATION
     Dosage: 100 MILLIGRAM, UNK
     Route: 048

REACTIONS (4)
  - Fatigue [Unknown]
  - Abdominal distension [Unknown]
  - Myalgia [Unknown]
  - Limb discomfort [Unknown]
